FAERS Safety Report 5911581-0 (Version None)
Quarter: 2008Q4

REPORT INFORMATION
  Report Type: 
  Country: None (occurrence: None)
  Receive Date: 20081003
  Receipt Date: 20080918
  Transmission Date: 20090506
  Serious: Yes (Other)
  Sender: FDA-Public Use
  Company Number: 2008S1015720

PATIENT
  Age: 60 Year
  Sex: Female

DRUGS (6)
  1. FENTANYL-100 [Suspect]
     Indication: ANAESTHESIA
     Dosage: 200 UG;INTRAVENOUS; 800 UG;INTRAVENOUS
     Route: 042
  2. PAROXETINE HCL [Suspect]
     Indication: DEPRESSION
     Dosage: 200 UG; 800 UG; 2545 UG
  3. ATRACURIUM BESYLATE [Suspect]
     Indication: DRUG USE FOR UNKNOWN INDICATION
  4. ISOFLURANE [Concomitant]
  5. PROPOFOL [Concomitant]
  6. LEVOTHYROXINE SODIUM [Concomitant]

REACTIONS (12)
  - AGITATION [None]
  - BLOOD ALBUMIN DECREASED [None]
  - CLONUS [None]
  - DISSOCIATION [None]
  - DRUG INTERACTION [None]
  - GLASGOW COMA SCALE ABNORMAL [None]
  - HYPERREFLEXIA [None]
  - HYPERTENSION [None]
  - HYPERTONIA [None]
  - OPERATIVE HAEMORRHAGE [None]
  - RED BLOOD CELL COUNT DECREASED [None]
  - SEROTONIN SYNDROME [None]
